FAERS Safety Report 10678260 (Version 3)
Quarter: 2015Q2

REPORT INFORMATION
  Report Type: Report from Study
  Country: JP (occurrence: JP)
  Receive Date: 20141229
  Receipt Date: 20150422
  Transmission Date: 20150821
  Serious: Yes (Hospitalization, Other)
  Sender: FDA-Public Use
  Company Number: PHHY2014JP048551

PATIENT
  Age: 57 Year
  Sex: Male

DRUGS (53)
  1. CLOZARIL [Suspect]
     Active Substance: CLOZAPINE
     Dosage: 175 MG, QD
     Route: 048
     Dates: start: 20130824, end: 20130826
  2. CLOZARIL [Suspect]
     Active Substance: CLOZAPINE
     Dosage: 200 MG, QD
     Route: 048
     Dates: start: 20130827, end: 20130910
  3. CLOZARIL [Suspect]
     Active Substance: CLOZAPINE
     Dosage: 300 MG, QD
     Route: 048
     Dates: start: 20131106, end: 20140128
  4. CLOZARIL [Suspect]
     Active Substance: CLOZAPINE
     Dosage: 600 MG, QD
     Route: 048
     Dates: start: 20140429
  5. ARTANE [Suspect]
     Active Substance: TRIHEXYPHENIDYL HYDROCHLORIDE
     Indication: SALIVARY HYPERSECRETION
     Dosage: 6 MG, QD
     Route: 048
     Dates: start: 20140402, end: 20140501
  6. ZYPREXA [Concomitant]
     Active Substance: OLANZAPINE
     Indication: SCHIZOPHRENIA, PARANOID TYPE
     Dosage: 10 MG, UNK
     Route: 048
     Dates: start: 20130807, end: 20130820
  7. BENZALIN [Concomitant]
     Active Substance: NITRAZEPAM
     Dosage: 5 MG, QD
     Route: 048
  8. BENZALIN [Concomitant]
     Active Substance: NITRAZEPAM
     Dosage: 5 MG, QD
     Route: 048
  9. CETILO [Concomitant]
     Indication: PRODUCT USED FOR UNKNOWN INDICATION
     Dosage: 6 DF, QD
     Route: 048
     Dates: start: 20120106, end: 20140428
  10. CLOZARIL [Suspect]
     Active Substance: CLOZAPINE
     Dosage: 150 MG, QD
     Route: 048
     Dates: start: 20130821, end: 20130823
  11. ZYPREXA [Concomitant]
     Active Substance: OLANZAPINE
     Dosage: 5 MG, QD
     Route: 048
     Dates: start: 20130821, end: 20130827
  12. BENZALIN [Concomitant]
     Active Substance: NITRAZEPAM
     Indication: SCHIZOPHRENIA, PARANOID TYPE
     Dosage: 5 MG, QD
     Route: 048
     Dates: start: 20091222
  13. BENZALIN [Concomitant]
     Active Substance: NITRAZEPAM
     Dosage: 5 MG, QD
     Route: 048
  14. BENZALIN [Concomitant]
     Active Substance: NITRAZEPAM
     Dosage: 5 MG, QD
     Route: 048
  15. BENZALIN [Concomitant]
     Active Substance: NITRAZEPAM
     Dosage: 5 MG, QD
     Route: 048
  16. CLOZARIL [Suspect]
     Active Substance: CLOZAPINE
     Dosage: 250 MG, QD
     Route: 048
     Dates: start: 20130911, end: 20130924
  17. CLOZARIL [Suspect]
     Active Substance: CLOZAPINE
     Dosage: 400 MG, QD
     Route: 048
     Dates: start: 20140129, end: 20140408
  18. BENZALIN [Concomitant]
     Active Substance: NITRAZEPAM
     Dosage: 5 MG, QD
     Route: 048
  19. BENZALIN [Concomitant]
     Active Substance: NITRAZEPAM
     Dosage: 5 MG, QD
     Route: 048
  20. BENZALIN [Concomitant]
     Active Substance: NITRAZEPAM
     Dosage: 5 MG, QD
     Route: 048
     Dates: end: 20140128
  21. WYPAX [Concomitant]
     Active Substance: LORAZEPAM
     Dosage: 1 MG, UNK
     Route: 048
     Dates: start: 20130925, end: 20140304
  22. RISPERIDONE. [Concomitant]
     Active Substance: RISPERIDONE
     Dosage: 2 ML, QD
     Route: 048
  23. RISPERIDONE. [Concomitant]
     Active Substance: RISPERIDONE
     Dosage: 2 ML, QD
     Route: 048
  24. CETILO [Concomitant]
     Dosage: 6 DF, QD
     Route: 048
     Dates: start: 20140508
  25. CLOZARIL [Suspect]
     Active Substance: CLOZAPINE
     Dosage: 50 MG, QD
     Route: 048
     Dates: start: 20130811, end: 20130813
  26. CLOZARIL [Suspect]
     Active Substance: CLOZAPINE
     Dosage: 75 MG, QD
     Route: 048
     Dates: start: 20130814, end: 20130815
  27. BENZALIN [Concomitant]
     Active Substance: NITRAZEPAM
     Dosage: 5 MG, QD
     Route: 048
  28. BENZALIN [Concomitant]
     Active Substance: NITRAZEPAM
     Dosage: 5 MG, QD
     Route: 048
  29. RISPERIDONE. [Concomitant]
     Active Substance: RISPERIDONE
     Indication: SCHIZOPHRENIA, PARANOID TYPE
     Dosage: 2 ML, QD
     Route: 048
     Dates: start: 20130828
  30. CLOZARIL [Suspect]
     Active Substance: CLOZAPINE
     Dosage: 300 MG, QD
     Route: 048
     Dates: start: 20130925, end: 20131001
  31. SILECE [Concomitant]
     Active Substance: FLUNITRAZEPAM
     Indication: SCHIZOPHRENIA, PARANOID TYPE
     Dosage: 2 MG, QD
     Route: 048
     Dates: start: 20090722
  32. BENZALIN [Concomitant]
     Active Substance: NITRAZEPAM
     Dosage: 5 MG, QD
     Route: 048
  33. CLOZARIL [Suspect]
     Active Substance: CLOZAPINE
     Dosage: 25 MG, QD
     Route: 048
     Dates: start: 20130808, end: 20130810
  34. CLOZARIL [Suspect]
     Active Substance: CLOZAPINE
     Dosage: 100 MG, QD
     Route: 048
     Dates: start: 20130816, end: 20130817
  35. CLOZARIL [Suspect]
     Active Substance: CLOZAPINE
     Dosage: 125 MG, QD
     Route: 048
     Dates: start: 20130818, end: 20130820
  36. IMPROMEN [Concomitant]
     Active Substance: BROMPERIDOL
     Indication: SCHIZOPHRENIA, PARANOID TYPE
     Dosage: 12 MG, QD
     Route: 048
     Dates: start: 20130807, end: 20130813
  37. HIRNAMIN [Concomitant]
     Active Substance: PHENOTHIAZINE
     Indication: SCHIZOPHRENIA, PARANOID TYPE
     Dosage: 50 MG, UNK
     Route: 048
     Dates: start: 20130807, end: 20130813
  38. BENZALIN [Concomitant]
     Active Substance: NITRAZEPAM
     Dosage: 5 MG, QD
     Route: 048
  39. BENZALIN [Concomitant]
     Active Substance: NITRAZEPAM
     Dosage: 5 MG, QD
     Route: 048
  40. BENZALIN [Concomitant]
     Active Substance: NITRAZEPAM
     Dosage: 5 MG, QD
     Route: 048
  41. EBRANTIL [Concomitant]
     Active Substance: URAPIDIL
     Indication: PRODUCT USED FOR UNKNOWN INDICATION
     Dosage: 30 MG, QD
     Route: 048
     Dates: start: 20110901
  42. WYPAX [Concomitant]
     Active Substance: LORAZEPAM
     Indication: SCHIZOPHRENIA, PARANOID TYPE
     Dosage: 1.5 MG, QD
     Route: 048
     Dates: start: 20091029, end: 20130924
  43. TASMOLIN [Concomitant]
     Active Substance: BIPERIDEN
     Dosage: 1 MG, QD
     Route: 048
     Dates: end: 20140304
  44. CETILO [Concomitant]
     Dosage: 9 DF, QD
     Route: 048
     Dates: start: 20140429, end: 20140507
  45. CLOZARIL [Suspect]
     Active Substance: CLOZAPINE
     Indication: SCHIZOPHRENIA, PARANOID TYPE
     Dosage: 12.5 MG, QD
     Route: 048
     Dates: start: 20130807, end: 20130807
  46. CLOZARIL [Suspect]
     Active Substance: CLOZAPINE
     Dosage: 500 MG, QD
     Route: 048
     Dates: start: 20140409, end: 20140428
  47. IMPROMEN [Concomitant]
     Active Substance: BROMPERIDOL
     Dosage: 6 MG, QD
     Route: 048
     Dates: start: 20130814, end: 20130820
  48. HIRNAMIN [Concomitant]
     Active Substance: PHENOTHIAZINE
     Dosage: 25 MG, QD
     Route: 048
     Dates: start: 20130814, end: 20130827
  49. BENZALIN [Concomitant]
     Active Substance: NITRAZEPAM
     Dosage: 5 MG, QD
     Route: 048
  50. RISPERIDONE. [Concomitant]
     Active Substance: RISPERIDONE
     Dosage: 2 ML, QD
     Route: 048
     Dates: end: 20140110
  51. CLOZARIL [Suspect]
     Active Substance: CLOZAPINE
     Dosage: 250 MG, QD
     Route: 048
     Dates: start: 20131002, end: 20131105
  52. TASMOLIN [Concomitant]
     Active Substance: BIPERIDEN
     Indication: PROPHYLAXIS
     Dosage: 3 MG, QD
     Route: 048
     Dates: start: 20100603, end: 20130924
  53. TASMOLIN [Concomitant]
     Active Substance: BIPERIDEN
     Dosage: 2 MG, QD
     Route: 048
     Dates: start: 20130925

REACTIONS (15)
  - Salivary hypersecretion [Not Recovered/Not Resolved]
  - Mental disorder [Unknown]
  - Impulsive behaviour [Not Recovered/Not Resolved]
  - Haemoglobin decreased [Unknown]
  - Heart rate increased [Unknown]
  - Chest pain [Recovered/Resolved]
  - Aggression [Unknown]
  - Decreased appetite [Unknown]
  - Haematocrit decreased [Unknown]
  - Constipation [Recovering/Resolving]
  - Weight decreased [Not Recovered/Not Resolved]
  - Bundle branch block right [Unknown]
  - Acute myocardial infarction [Unknown]
  - Hallucination, auditory [Unknown]
  - White blood cell count increased [Unknown]

NARRATIVE: CASE EVENT DATE: 20131126
